FAERS Safety Report 8059387-3 (Version None)
Quarter: 2012Q1

REPORT INFORMATION
  Report Type: 
  Country: None (occurrence: None)
  Receive Date: 20120112
  Receipt Date: 20120102
  Transmission Date: 20120608
  Serious: Yes (Hospitalization)
  Sender: FDA-Public Use
  Company Number: 1000024301

PATIENT
  Age: 74 Year
  Sex: Female

DRUGS (11)
  1. CORODIL COMP (ENALAPRIL, HYDROCHLOROTHIAZIDE) (ENALAPRIL, HYDROCHLOROT [Concomitant]
  2. SPARKAL (AMILORIDE, HYDROCHLOROTHIAZIDE) (AMILORIDE, HYDROCHLOROTHIAZI [Concomitant]
  3. ROFLUMILAST (ROFLUMILAST) (500 MICROGRAM, TABLETS) [Suspect]
     Indication: CHRONIC OBSTRUCTIVE PULMONARY DISEASE
     Dosage: 500 MCG (500 MCG, 1 IN 1 D), ORAL
     Route: 048
     Dates: start: 20101101, end: 20110902
  4. METFORMIN HCL [Concomitant]
  5. VENTOLINE (SALBUTAMOL) (SALBUTAMOL) [Concomitant]
  6. JANUVIA [Suspect]
     Indication: TYPE 2 DIABETES MELLITUS
     Dosage: 100 MG (100 MG, 1 IN 1 D), ORAL
     Route: 048
     Dates: start: 20110601, end: 20110902
  7. SPIRIVA (TIOTROPIUM BROMIDE) (TIOTROPIUM BROMIDE) [Concomitant]
  8. PANTOPRAZOLE (PANTOPRAZOLE) (PANTOPRAZOLE) [Concomitant]
  9. PANODIL (PARACETAMOL) (PARACETAMOL) [Concomitant]
  10. SERETIDE DISKUS (SALMETEROL, FLUTICASONE) (SALMETEROL, FLUTICASONE) [Concomitant]
  11. SIMVASTATIN [Concomitant]

REACTIONS (6)
  - ACUTE MYOCARDIAL INFARCTION [None]
  - DYSARTHRIA [None]
  - RESPIRATORY FAILURE [None]
  - ANGIOEDEMA [None]
  - ACUTE CORONARY SYNDROME [None]
  - DYSPHAGIA [None]
